FAERS Safety Report 14570148 (Version 1)
Quarter: 2018Q1

REPORT INFORMATION
  Report Type: Spontaneous
  Country: FR (occurrence: FR)
  Receive Date: 20180225
  Receipt Date: 20180225
  Transmission Date: 20180509
  Serious: Yes (Hospitalization, Other)
  Sender: FDA-Public Use
  Company Number: FR-MYLANLABS-2018M1011158

PATIENT
  Age: 42 Year
  Sex: Male

DRUGS (9)
  1. FLUOROURACIL MYLAN [Suspect]
     Active Substance: FLUOROURACIL
     Indication: OESOPHAGEAL ADENOCARCINOMA
     Dosage: 400 MG/M2, NAMELY 190 MG TOTAL DOSE IN 500 ML OF G5%, 3 CYCLES
     Route: 040
  2. SODIUM CHLORIDE. [Concomitant]
     Active Substance: SODIUM CHLORIDE
     Indication: PRODUCT USED FOR UNKNOWN INDICATION
     Dosage: 140 ML
     Route: 042
  3. GLUCOSE [Concomitant]
     Active Substance: DEXTROSE
     Dosage: 500 ML
     Route: 042
  4. FOLINIC ACID [Concomitant]
     Active Substance: LEUCOVORIN
     Indication: METASTASES TO LIVER
     Route: 042
  5. FOLINIC ACID [Concomitant]
     Active Substance: LEUCOVORIN
     Indication: GASTROINTESTINAL CANCER METASTATIC
     Dosage: UNK
     Route: 042
  6. OXALIPLATIN MYLAN [Suspect]
     Active Substance: OXALIPLATIN
     Indication: OESOPHAGEAL ADENOCARCINOMA
     Dosage: 85 MG/M2, NAMELY 190 MG TOTAL DOSE IN 500 ML OF G5%), ONE CYCLE, DRUG STOPPED DURING THE SECOND CYCL
     Route: 042
  7. OXALIPLATIN MYLAN [Suspect]
     Active Substance: OXALIPLATIN
     Indication: METASTASES TO LIVER
  8. FLUOROURACIL MYLAN [Suspect]
     Active Substance: FLUOROURACIL
     Dosage: 5500 MG, UNK,1200 MG/M2,NAMELY 5 500 MG TOTAL DOSE IN 140 ML NACL, 3 CYCLES
     Route: 042
  9. GLUCOSE [Concomitant]
     Active Substance: DEXTROSE
     Indication: PRODUCT USED FOR UNKNOWN INDICATION
     Dosage: 100 ML
     Route: 040

REACTIONS (9)
  - Chest discomfort [Unknown]
  - Administration site extravasation [Unknown]
  - Bronchospasm [Unknown]
  - Toxicity to various agents [Unknown]
  - Pain [Unknown]
  - Dysphonia [Recovering/Resolving]
  - Cough [Unknown]
  - Cardiotoxicity [Unknown]
  - Vocal cord paralysis [Unknown]
